FAERS Safety Report 24936535 (Version 1)
Quarter: 2025Q1

REPORT INFORMATION
  Report Type: Spontaneous
  Country: CN (occurrence: CN)
  Receive Date: 20250206
  Receipt Date: 20250206
  Transmission Date: 20250409
  Serious: Yes (Other)
  Sender: RANBAXY
  Company Number: CN-SUN PHARMACEUTICAL INDUSTRIES LTD-2025R1-492309

PATIENT
  Age: 28 Year
  Sex: Male

DRUGS (2)
  1. DEXAMETHASONE [Suspect]
     Active Substance: DEXAMETHASONE
     Indication: Chemotherapy
     Route: 065
     Dates: start: 202008
  2. VINDESINE [Suspect]
     Active Substance: VINDESINE
     Indication: Chemotherapy
     Route: 065
     Dates: start: 202008

REACTIONS (1)
  - Klebsiella infection [Recovering/Resolving]
